FAERS Safety Report 5576577-X (Version None)
Quarter: 2007Q4

REPORT INFORMATION
  Report Type: 
  Country: None (occurrence: None)
  Receive Date: 20071228
  Receipt Date: 20071024
  Transmission Date: 20080405
  Serious: No
  Sender: FDA-Public Use
  Company Number: A0689587A

PATIENT
  Age: 7 Year
  Sex: Female

DRUGS (3)
  1. FLOVENT [Suspect]
     Indication: ASTHMA
     Dosage: 110MCG TWICE PER DAY
     Route: 055
     Dates: start: 20071002
  2. ALBUTEROL [Suspect]
  3. IBUPROFEN JUNIOR [Concomitant]

REACTIONS (2)
  - ALOPECIA [None]
  - HEADACHE [None]
